FAERS Safety Report 12146375 (Version 1)
Quarter: 2016Q1

REPORT INFORMATION
  Report Type: Spontaneous
  Country: US (occurrence: US)
  Receive Date: 20160304
  Receipt Date: 20160304
  Transmission Date: 20160526
  Serious: No
  Sender: FDA-Public Use
  Company Number: US-INDIVIOR LIMITED-INDV-084059-2015

PATIENT
  Sex: Male

DRUGS (3)
  1. SUBOXONE [Suspect]
     Active Substance: BUPRENORPHINE HYDROCHLORIDE\NALOXONE HYDROCHLORIDE
     Indication: DRUG DEPENDENCE
     Dosage: UNK DAILY
     Route: 060
  2. SUBOXONE [Suspect]
     Active Substance: BUPRENORPHINE HYDROCHLORIDE\NALOXONE HYDROCHLORIDE
     Indication: DRUG DEPENDENCE
     Dosage: UNK DAILY
     Route: 060
     Dates: end: 201509
  3. SUBOXONE [Suspect]
     Active Substance: BUPRENORPHINE HYDROCHLORIDE\NALOXONE HYDROCHLORIDE
     Dosage: UNK DAILY
     Route: 060
     Dates: start: 20151002

REACTIONS (9)
  - Exostosis [Not Recovered/Not Resolved]
  - Irritability [Recovered/Resolved]
  - Drug withdrawal syndrome [Recovering/Resolving]
  - Intentional underdose [Recovered/Resolved]
  - Condition aggravated [Unknown]
  - Oral pain [Unknown]
  - Intentional product use issue [Recovered/Resolved]
  - Tooth disorder [Unknown]
  - Pain in jaw [Unknown]

NARRATIVE: CASE EVENT DATE: 20151002
